FAERS Safety Report 5323728-8 (Version None)
Quarter: 2007Q2

REPORT INFORMATION
  Report Type: 
  Country: None (occurrence: None)
  Receive Date: 20070514
  Receipt Date: 20070507
  Transmission Date: 20071010
  Serious: Yes (Other)
  Sender: FDA-Public Use
  Company Number: JP-AVENTIS-200711078JP

PATIENT
  Age: 33 Year
  Sex: Female
  Weight: 53 kg

DRUGS (10)
  1. ALLEGRA [Suspect]
     Route: 048
     Dates: start: 20070203, end: 20070324
  2. ALLEGRA [Suspect]
     Indication: PSORIASIS
     Route: 048
     Dates: start: 20070203, end: 20070324
  3. OXAROL [Concomitant]
     Route: 062
     Dates: start: 20070124, end: 20070210
  4. OXAROL [Concomitant]
     Route: 062
     Dates: start: 20070301
  5. HIRUDOID                           /00723701/ [Concomitant]
     Route: 062
     Dates: start: 20070101
  6. NEOMALLERMIN [Concomitant]
     Indication: URTICARIA
     Route: 048
     Dates: start: 20070101, end: 20070224
  7. NEOMALLERMIN [Concomitant]
     Route: 048
     Dates: start: 20070324
  8. ANTEBATE [Concomitant]
     Route: 062
     Dates: start: 20070101, end: 20070210
  9. ANTEBATE [Concomitant]
     Route: 062
     Dates: start: 20070301
  10. EBASTEL [Concomitant]
     Indication: URTICARIA
     Route: 048
     Dates: start: 20070127, end: 20070224

REACTIONS (2)
  - DRUG EXPOSURE DURING PREGNANCY [None]
  - IMMINENT ABORTION [None]
